FAERS Safety Report 24149721 (Version 3)
Quarter: 2025Q4

REPORT INFORMATION
  Report Type: Spontaneous
  Country: US (occurrence: US)
  Receive Date: 20240730
  Receipt Date: 20251229
  Transmission Date: 20260117
  Serious: Yes (Hospitalization, Other)
  Sender: NOVO NORDISK
  Company Number: US-NOVOPROD-1259708

PATIENT
  Age: 39 Year
  Sex: Female

DRUGS (49)
  1. OZEMPIC [Suspect]
     Active Substance: SEMAGLUTIDE
     Indication: Polycystic ovarian syndrome
  2. OZEMPIC [Suspect]
     Active Substance: SEMAGLUTIDE
     Indication: Obesity
     Dosage: 1 MG, QW
     Route: 058
     Dates: start: 20230901, end: 202311
  3. OZEMPIC [Suspect]
     Active Substance: SEMAGLUTIDE
     Indication: Type 2 diabetes mellitus
     Dosage: 0.5 MG, QW
     Route: 058
     Dates: start: 20211206, end: 20230814
  4. MOUNJARO [Suspect]
     Active Substance: TIRZEPATIDE
     Indication: Type 2 diabetes mellitus
     Dosage: 5 MG
     Dates: start: 202311, end: 20240503
  5. MOUNJARO [Suspect]
     Active Substance: TIRZEPATIDE
     Indication: Polycystic ovarian syndrome
     Dosage: 15 MG, QW
     Dates: start: 20240814
  6. MOUNJARO [Suspect]
     Active Substance: TIRZEPATIDE
     Indication: Obesity
     Dosage: 7.5 MG, QW
     Dates: start: 20240503, end: 20240814
  7. AZELASTINE [Concomitant]
     Active Substance: AZELASTINE
     Indication: Hypersensitivity
     Dosage: UNK
     Dates: start: 20220519, end: 20231208
  8. AZELASTINE [Concomitant]
     Active Substance: AZELASTINE
     Indication: Eye pruritus
  9. TRIAMCINOLONE [Concomitant]
     Active Substance: TRIAMCINOLONE
     Indication: Hypersensitivity
     Dosage: UNK
     Dates: start: 20220519, end: 20220619
  10. PREDNISONE [Concomitant]
     Active Substance: PREDNISONE
     Indication: Hypersensitivity
     Dosage: UNK
     Dates: start: 20220430, end: 20220530
  11. FLUCONAZOLE [Concomitant]
     Active Substance: FLUCONAZOLE
     Indication: Fungal infection
     Dosage: UNK
     Dates: start: 20200214, end: 20221130
  12. COLCHICINE [Concomitant]
     Active Substance: COLCHICINE
     Indication: Back pain
     Dosage: UNK
     Dates: start: 20220725
  13. COLCHICINE [Concomitant]
     Active Substance: COLCHICINE
     Indication: Neuralgia
  14. PROMETHAZINE [Concomitant]
     Active Substance: PROMETHAZINE HYDROCHLORIDE
     Indication: Nausea
     Dosage: UNK
     Dates: start: 20220920, end: 20231027
  15. CETIRIZINE [Concomitant]
     Active Substance: CETIRIZINE HYDROCHLORIDE
     Indication: Hypersensitivity
     Dosage: UNK
     Dates: start: 20220413, end: 20221130
  16. LINZESS [Concomitant]
     Active Substance: LINACLOTIDE
     Indication: Constipation
     Dosage: UNK
     Dates: start: 20230103, end: 20230203
  17. IRON [Concomitant]
     Active Substance: IRON
     Indication: Iron deficiency
     Dosage: UNK
     Dates: start: 20230215, end: 20231027
  18. LEVOTHYROXINE [Concomitant]
     Active Substance: LEVOTHYROXINE
     Indication: Hypothyroidism
     Dosage: UNK
     Dates: start: 20220808, end: 20230225
  19. SUCRALFATE [Concomitant]
     Active Substance: SUCRALFATE
     Indication: Gastrooesophageal reflux disease
     Dosage: UNK
     Dates: start: 20230228, end: 20230930
  20. MONTELUKAST [Concomitant]
     Active Substance: MONTELUKAST
     Indication: Hypersensitivity
     Dosage: UNK
     Dates: start: 20230510
  21. LORATADINE [Concomitant]
     Active Substance: LORATADINE
     Indication: Hypersensitivity
     Dosage: UNK
     Dates: start: 20230620, end: 20230720
  22. TEMAZEPAM [Concomitant]
     Active Substance: TEMAZEPAM
     Indication: Insomnia
     Dosage: UNK
     Dates: start: 20230706, end: 20240801
  23. SPIRONOLACTONE [Concomitant]
     Active Substance: SPIRONOLACTONE
     Indication: Hypertension
     Dosage: UNK
     Dates: start: 20230823, end: 20231027
  24. ZOLPIDEM [Concomitant]
     Active Substance: ZOLPIDEM TARTRATE
     Indication: Insomnia
     Dosage: UNK
     Dates: start: 20230810, end: 20231117
  25. OXYCODONE [Concomitant]
     Active Substance: OXYCODONE
     Indication: Analgesic therapy
     Dosage: UNK
     Dates: start: 20210617, end: 20231230
  26. ACETAMINOPHEN [Concomitant]
     Active Substance: ACETAMINOPHEN
     Indication: Analgesic therapy
  27. TRANEXAMIC ACID [Concomitant]
     Active Substance: TRANEXAMIC ACID
     Indication: Heavy menstrual bleeding
     Dosage: UNK
     Dates: start: 20211102
  28. TRIAZOLAM [Concomitant]
     Active Substance: TRIAZOLAM
     Indication: Insomnia
     Dosage: UNK
     Dates: start: 20220120, end: 20230601
  29. GABAPENTIN [Concomitant]
     Active Substance: GABAPENTIN
     Indication: Neuralgia
     Dosage: UNK
     Dates: start: 20220214, end: 20240801
  30. CYANOCOBALAMIN [Concomitant]
     Active Substance: CYANOCOBALAMIN
     Indication: Vitamin B12 deficiency
     Dosage: UNK
     Dates: start: 20220309
  31. TYLENOL [Concomitant]
     Active Substance: ACETAMINOPHEN
     Indication: Vitamin B12
     Dosage: UNK
     Dates: start: 20150101
  32. OMEPRAZOLE [Concomitant]
     Active Substance: OMEPRAZOLE
     Indication: Nausea
     Dosage: UNK
     Dates: start: 20200806, end: 20221220
  33. IBUPROFEN [Concomitant]
     Active Substance: IBUPROFEN
     Indication: Back pain
     Dosage: UNK
     Dates: start: 20201225
  34. IBUPROFEN [Concomitant]
     Active Substance: IBUPROFEN
     Indication: Dysmenorrhoea
  35. IBUPROFEN [Concomitant]
     Active Substance: IBUPROFEN
     Indication: Uterine leiomyoma
  36. TRAZODONE [Concomitant]
     Active Substance: TRAZODONE HYDROCHLORIDE
     Indication: Sleep disorder
     Dosage: UNK
     Dates: start: 20220512, end: 20220613
  37. FAMOTIDINE [Concomitant]
     Active Substance: FAMOTIDINE
     Indication: Nausea
  38. FAMOTIDINE [Concomitant]
     Active Substance: FAMOTIDINE
     Indication: Gastrooesophageal reflux disease
     Dosage: UNK
     Dates: start: 20211102, end: 20221115
  39. FERROUS SULFATE [Concomitant]
     Active Substance: FERROUS SULFATE
     Indication: Iron deficiency
     Dosage: UNK
     Dates: start: 20180101, end: 20220920
  40. ONDANSETRON [Concomitant]
     Active Substance: ONDANSETRON
     Indication: Nausea
     Dosage: UNK
     Dates: start: 20210211, end: 20230914
  41. DOCUSATE [Concomitant]
     Active Substance: DOCUSATE
     Indication: Constipation
     Dosage: UNK
     Dates: start: 20201225, end: 20220808
  42. HYDROCODONE [Concomitant]
     Active Substance: HYDROCODONE
     Indication: Pain
     Dosage: UNK
     Dates: start: 20210311, end: 20220808
  43. SCOPOLAMINE [Concomitant]
     Active Substance: SCOPOLAMINE
     Indication: Nausea
     Dosage: UNK
     Dates: start: 20210311, end: 20221006
  44. NORETHINDRONE ACETATE [Concomitant]
     Active Substance: NORETHINDRONE ACETATE
     Indication: In vitro fertilisation
     Dosage: UNK
     Dates: start: 20210211, end: 20231121
  45. TERCONAZOLE [Concomitant]
     Active Substance: TERCONAZOLE
     Indication: In vitro fertilisation
     Dosage: UNK
     Dates: start: 20210922, end: 20220321
  46. ISIBLOOM [Concomitant]
     Active Substance: DESOGESTREL\ETHINYL ESTRADIOL
     Indication: Contraception
     Dosage: UNK
     Dates: start: 20210109, end: 20211228
  47. BUPROPION [Concomitant]
     Active Substance: BUPROPION
     Indication: Product used for unknown indication
     Dosage: UNK
  48. PLENVU [Concomitant]
     Active Substance: ASCORBIC ACID\POLYETHYLENE GLYCOL 3350\POTASSIUM CHLORIDE\SODIUM ASCORBATE\SODIUM CHLORIDE\SODIUM SU
     Indication: Colonoscopy
     Dosage: UNK
     Dates: start: 20230322, end: 20230325
  49. METFORMIN [Concomitant]
     Active Substance: METFORMIN HYDROCHLORIDE
     Indication: Type 2 diabetes mellitus
     Dosage: UNK
     Dates: start: 20211115, end: 20231208

REACTIONS (6)
  - Impaired gastric emptying [Recovered/Resolved]
  - Intestinal obstruction [Unknown]
  - Vomiting [Recovered/Resolved]
  - Abdominal pain upper [Recovered/Resolved]
  - Nausea [Recovered/Resolved]
  - Off label use [Unknown]

NARRATIVE: CASE EVENT DATE: 20211201
